FAERS Safety Report 9309670 (Version 1)
Quarter: 2013Q2

REPORT INFORMATION
  Report Type: Spontaneous
  Country: US (occurrence: US)
  Receive Date: 20130525
  Receipt Date: 20130525
  Transmission Date: 20140414
  Serious: No
  Sender: FDA-Public Use
  Company Number: US-BRISTOL-MYERS SQUIBB COMPANY-18586412

PATIENT
  Age: 68 Year
  Sex: Female

DRUGS (6)
  1. BYDUREON [Suspect]
     Indication: TYPE 2 DIABETES MELLITUS
     Dosage: LONG ACTING RELEASE 2MG
     Route: 058
     Dates: start: 20130204
  2. BYETTA [Suspect]
     Indication: TYPE 2 DIABETES MELLITUS
     Route: 058
     Dates: start: 2009, end: 20130203
  3. METFORMIN [Concomitant]
  4. GLYBURIDE [Concomitant]
  5. EXENATIDE 5MCG PEN, DISPOSABLE DEVICE [Concomitant]
  6. EXENATIDE 10MCG PEN, DISPOSABLE DEVICE [Concomitant]

REACTIONS (5)
  - Blood glucose increased [Recovering/Resolving]
  - Head discomfort [Recovering/Resolving]
  - Injection site haemorrhage [Recovered/Resolved]
  - Blood glucose decreased [Recovering/Resolving]
  - Injection site mass [Not Recovered/Not Resolved]
